FAERS Safety Report 8598915-6 (Version None)
Quarter: 2012Q3

REPORT INFORMATION
  Report Type: 
  Country: None (occurrence: None)
  Receive Date: 20120816
  Receipt Date: 19911205
  Transmission Date: 20120928
  Serious: Yes (Hospitalization)
  Sender: FDA-Public Use
  Company Number: US-ROCHE-1100936

PATIENT
  Sex: Male

DRUGS (1)
  1. ACTIVASE [Suspect]
     Indication: CHEST PAIN
     Route: 042

REACTIONS (4)
  - ANXIETY [None]
  - CHEST PAIN [None]
  - TINNITUS [None]
  - VENTRICULAR EXTRASYSTOLES [None]
